FAERS Safety Report 13724836 (Version 2)
Quarter: 2017Q3

REPORT INFORMATION
  Report Type: Spontaneous
  Country: FR (occurrence: FR)
  Receive Date: 20170706
  Receipt Date: 20170817
  Transmission Date: 20171127
  Serious: Yes (Other)
  Sender: FDA-Public Use
  Company Number: FR-GILEAD-2017-0281421

PATIENT
  Age: 45 Year
  Sex: Male
  Weight: 95 kg

DRUGS (2)
  1. INEGY [Concomitant]
     Active Substance: EZETIMIBE\SIMVASTATIN
  2. EVIPLERA [Suspect]
     Active Substance: EMTRICITABINE\RILPIVIRINE\TENOFOVIR DISOPROXIL FUMARATE
     Indication: HIV INFECTION
     Dosage: UNK
     Route: 065
     Dates: start: 2013

REACTIONS (1)
  - Non-alcoholic steatohepatitis [Unknown]
